FAERS Safety Report 6475597-0 (Version None)
Quarter: 2009Q4

REPORT INFORMATION
  Report Type: 
  Country: None (occurrence: None)
  Receive Date: 20091204
  Receipt Date: 20091125
  Transmission Date: 20100525
  Serious: Yes (Hospitalization)
  Sender: FDA-Public Use
  Company Number: FR-MERCK-0911FRA00086

PATIENT
  Age: 15 Year
  Sex: Male

DRUGS (20)
  1. PRIMAXIN [Suspect]
     Indication: RESPIRATORY TRACT INFECTION
     Route: 042
     Dates: start: 20091029
  2. PIPERACILLIN SODIUM AND TAZOBACTAM SODIUM [Suspect]
     Indication: RESPIRATORY TRACT INFECTION
     Route: 042
     Dates: start: 20091021, end: 20091028
  3. PAROXETINE HYDROCHLORIDE [Concomitant]
     Route: 065
  4. AMIKACIN SULFATE [Concomitant]
     Route: 065
  5. PHLOROGLUCINOL AND TRIMETHYLPHLOROGLUCINOL [Concomitant]
     Route: 065
  6. FILGRASTIM [Concomitant]
     Route: 065
     Dates: end: 20091030
  7. LANSOPRAZOLE [Concomitant]
     Route: 065
  8. ACETAMINOPHEN [Concomitant]
     Route: 065
  9. SULFAMETHOXAZOLE AND TRIMETHOPRIM [Concomitant]
     Route: 065
  10. DEXAMETHASONE ACETATE [Concomitant]
     Route: 065
  11. METRONIDAZOLE [Concomitant]
     Route: 065
  12. MERCAPTOPURINE [Concomitant]
     Route: 065
  13. ONDANSETRON HYDROCHLORIDE [Concomitant]
     Route: 065
  14. FUROSEMIDE [Concomitant]
     Route: 065
  15. VALACYCLOVIR HYDROCHLORIDE [Concomitant]
     Route: 065
  16. CHLORPROMAZINE HYDROCHLORIDE [Concomitant]
     Route: 065
  17. SERTRALINE HYDROCHLORIDE [Concomitant]
     Route: 065
  18. ALPRAZOLAM [Concomitant]
     Route: 065
  19. AMPHOTERICIN B AND CHOLESTEROL AND DISTEAROYLPHOSPHATIDYLGLYCEROL AND [Concomitant]
     Route: 065
     Dates: end: 20091030
  20. PHYTONADIONE [Concomitant]
     Route: 065
     Dates: start: 20091026

REACTIONS (1)
  - PROTHROMBIN TIME RATIO DECREASED [None]
